FAERS Safety Report 5145514-4 (Version None)
Quarter: 2006Q4

REPORT INFORMATION
  Report Type: 
  Country: None (occurrence: None)
  Receive Date: 20061101
  Receipt Date: 20061019
  Transmission Date: 20070319
  Serious: Yes (Hospitalization)
  Sender: FDA-Public Use
  Company Number: DSA_61051_2006

PATIENT
  Age: 6 Year
  Sex: Female
  Weight: 18.1439 kg

DRUGS (4)
  1. DIASTAT [Suspect]
     Indication: EPILEPSY
     Dosage: 10 MG PRN RC
     Dates: start: 20020101
  2. LAMICTAL [Concomitant]
  3. ZONEGRAN [Concomitant]
  4. VITAMIN B6 [Concomitant]

REACTIONS (3)
  - DRUG DISPENSING ERROR [None]
  - DRUG INEFFECTIVE [None]
  - WRONG TECHNIQUE IN DRUG USAGE PROCESS [None]
